FAERS Safety Report 13656603 (Version 1)
Quarter: 2017Q2

REPORT INFORMATION
  Report Type: Spontaneous
  Country: US (occurrence: US)
  Receive Date: 20170615
  Receipt Date: 20170615
  Transmission Date: 20170830
  Serious: Yes (Hospitalization)
  Sender: FDA-Public Use
  Company Number: US-PFIZER INC-2017258068

PATIENT
  Age: 20 Year
  Sex: Female
  Weight: 68 kg

DRUGS (1)
  1. DEPO-PROVERA [Suspect]
     Active Substance: MEDROXYPROGESTERONE ACETATE
     Indication: CONTRACEPTION
     Dosage: 1 DF, EVERY 3 MONTHS
     Dates: start: 201505, end: 20170501

REACTIONS (5)
  - Loss of consciousness [Unknown]
  - Hallucination [Not Recovered/Not Resolved]
  - Seizure [Unknown]
  - Migraine [Unknown]
  - Feeling abnormal [Not Recovered/Not Resolved]

NARRATIVE: CASE EVENT DATE: 201505
